FAERS Safety Report 22342046 (Version 4)
Quarter: 2023Q2

REPORT INFORMATION
  Report Type: Report from Study
  Country: GB (occurrence: GB)
  Receive Date: 20230518
  Receipt Date: 20230629
  Transmission Date: 20230722
  Serious: Yes (Hospitalization, Other)
  Sender: FDA-Public Use
  Company Number: GB-BAXTER-2023BAX021600

PATIENT
  Age: 63 Year
  Sex: Female
  Weight: 41 kg

DRUGS (37)
  1. WATER FOR INJECTION [Suspect]
     Active Substance: WATER
     Indication: Parenteral nutrition
     Dosage: 5 DAYS A WEEK
     Route: 065
     Dates: end: 202305
  2. WATER FOR INJECTION [Suspect]
     Active Substance: WATER
     Dosage: 15 ML, SATURDAY AND WEDNESDAY EVERY WEEK, 12-HOUR DAILY INFUSION
     Route: 040
     Dates: start: 20230510, end: 20230511
  3. CERNEVIT [Suspect]
     Active Substance: VITAMINS
     Indication: Parenteral nutrition
     Dosage: 5 DAYS A WEEK
     Route: 065
     Dates: end: 202305
  4. CERNEVIT [Suspect]
     Active Substance: VITAMINS
     Dosage: 15 ML, SATURDAY AND WEDNESDAY EVERY WEEK, 12-HOUR DAILY INFUSION
     Route: 040
     Dates: start: 20230510, end: 20230511
  5. DEXTROSE [Suspect]
     Active Substance: DEXTROSE\DEXTROSE MONOHYDRATE
     Indication: Parenteral nutrition
     Dosage: 5 DAYS A WEEK
     Route: 065
     Dates: end: 202305
  6. DEXTROSE [Suspect]
     Active Substance: DEXTROSE\DEXTROSE MONOHYDRATE
     Dosage: 1350 ML, SATURDAY AND WEDNESDAY EVERY WEEK, 12-HOUR DAILY INFUSION
     Route: 040
     Dates: start: 20230510, end: 20230511
  7. DEXTROSE [Suspect]
     Active Substance: DEXTROSE\DEXTROSE MONOHYDRATE
     Dosage: 5 DAYS A WEEK
     Route: 065
     Dates: start: 202305
  8. SYNTHAMIN [Suspect]
     Active Substance: AMINO ACIDS
     Indication: Parenteral nutrition
     Dosage: 5 DAYS A WEEK
     Route: 065
     Dates: end: 202305
  9. SYNTHAMIN [Suspect]
     Active Substance: AMINO ACIDS
     Dosage: 1818.3 ML, SATURDAY AND WEDNESDAY EVERY WEEK, 12-HOUR DAILY INFUSION
     Route: 040
     Dates: start: 20230510, end: 20230511
  10. SYNTHAMIN [Suspect]
     Active Substance: AMINO ACIDS
     Dosage: 5 DAYS A WEEK
     Route: 065
     Dates: start: 202305
  11. SODIUM CHLORIDE [Suspect]
     Active Substance: SODIUM CHLORIDE
     Indication: Medication dilution
     Dosage: 10 ML
     Route: 040
     Dates: start: 202305, end: 202305
  12. SODIUM CHLORIDE [Suspect]
     Active Substance: SODIUM CHLORIDE
     Indication: Catheter management
     Dosage: UNK
     Route: 040
     Dates: start: 202305, end: 202305
  13. IRON\MINERALS\POTASSIUM IOD\SODIUM FLUORIDE\SODIUM MOLYBDATE\SODIUM SE [Suspect]
     Active Substance: IRON\MINERALS\POTASSIUM IOD\SODIUM FLUORIDE\SODIUM MOLYBDATE\SODIUM SELENITE\ZINC
     Indication: Parenteral nutrition
     Dosage: 5 DAYS A WEEK
     Route: 065
     Dates: end: 202305
  14. IRON\MINERALS\POTASSIUM IOD\SODIUM FLUORIDE\SODIUM MOLYBDATE\SODIUM SE [Suspect]
     Active Substance: IRON\MINERALS\POTASSIUM IOD\SODIUM FLUORIDE\SODIUM MOLYBDATE\SODIUM SELENITE\ZINC
     Dosage: 30 ML, SATURDAY AND WEDNESDAY EVERY WEEK, 12-HOUR DAILY INFUSION (DOSAGE FORM: CONCENTRATE FOR SOLUT
     Route: 040
     Dates: start: 20230510, end: 20230511
  15. IRON\MINERALS\POTASSIUM IOD\SODIUM FLUORIDE\SODIUM MOLYBDATE\SODIUM SE [Suspect]
     Active Substance: IRON\MINERALS\POTASSIUM IOD\SODIUM FLUORIDE\SODIUM MOLYBDATE\SODIUM SELENITE\ZINC
     Dosage: 5 DAYS A WEEK
     Route: 065
     Dates: start: 202305
  16. CALCIUM CHLORIDE [Suspect]
     Active Substance: CALCIUM CHLORIDE
     Indication: Parenteral nutrition
     Dosage: 5 DAYS A WEEK
     Route: 065
     Dates: end: 202305
  17. CALCIUM CHLORIDE [Suspect]
     Active Substance: CALCIUM CHLORIDE
     Dosage: 15 ML, SATURDAY AND WEDNESDAY EVERY WEEK, 12-HOUR DAILY INFUSION
     Route: 040
     Dates: start: 20230510, end: 20230511
  18. CALCIUM CHLORIDE [Suspect]
     Active Substance: CALCIUM CHLORIDE
     Dosage: 5 DAYS A WEEK
     Route: 065
     Dates: start: 202305
  19. MAGNESIUM SULFATE [Suspect]
     Active Substance: MAGNESIUM SULFATE
     Indication: Parenteral nutrition
     Dosage: 5 DAYS A WEEK
     Route: 065
     Dates: end: 202305
  20. MAGNESIUM SULFATE [Suspect]
     Active Substance: MAGNESIUM SULFATE
     Dosage: 15 ML, SATURDAY AND WEDNESDAY EVERY WEEK, 12-HOUR DAILY INFUSION
     Route: 040
     Dates: start: 20230510, end: 20230511
  21. MAGNESIUM SULFATE [Suspect]
     Active Substance: MAGNESIUM SULFATE
     Dosage: 5 DAYS A WEEK
     Route: 065
     Dates: start: 202305
  22. POTASSIUM CHLORIDE [Suspect]
     Active Substance: POTASSIUM CHLORIDE
     Indication: Parenteral nutrition
     Dosage: 5 DAYS A WEEK
     Route: 065
     Dates: end: 202305
  23. POTASSIUM CHLORIDE [Suspect]
     Active Substance: POTASSIUM CHLORIDE
     Dosage: 99.9 ML, SATURDAY AND WEDNESDAY EVERY WEEK, 12-HOUR DAILY INFUSION
     Route: 040
     Dates: start: 20230510, end: 20230511
  24. POTASSIUM CHLORIDE [Suspect]
     Active Substance: POTASSIUM CHLORIDE
     Dosage: 5 DAYS
     Route: 065
     Dates: start: 202305
  25. SODIUM CHLORIDE [Suspect]
     Active Substance: SODIUM CHLORIDE
     Indication: Parenteral nutrition
     Dosage: 5 DAYS A WEEK
     Route: 065
     Dates: end: 202305
  26. SODIUM CHLORIDE [Suspect]
     Active Substance: SODIUM CHLORIDE
     Dosage: 157.50 ML SATURDAY AND WEDNESDAY EVERY WEEK, 12-HOUR DAILY INFUSION
     Route: 040
     Dates: start: 20230510, end: 20230511
  27. SODIUM CHLORIDE [Suspect]
     Active Substance: SODIUM CHLORIDE
     Dosage: 5 DAYS A WEEK
     Route: 065
     Dates: start: 202305
  28. SODIUM GLYCEROPHOSPHATE [Suspect]
     Active Substance: SODIUM GLYCEROPHOSPHATE
     Indication: Parenteral nutrition
     Dosage: 5 DAYS A WEEK
     Route: 065
     Dates: end: 202305
  29. SODIUM GLYCEROPHOSPHATE [Suspect]
     Active Substance: SODIUM GLYCEROPHOSPHATE
     Dosage: 60 ML, SATURDAY AND WEDNESDAY EVERY WEEK, 12-HOUR DAILY INFUSION
     Route: 040
     Dates: start: 20230510, end: 20230511
  30. SODIUM GLYCEROPHOSPHATE [Suspect]
     Active Substance: SODIUM GLYCEROPHOSPHATE
     Dosage: 5 DAYS A WEEK
     Route: 065
     Dates: start: 202305
  31. WATER FOR INJECTION [Suspect]
     Active Substance: WATER
     Indication: Parenteral nutrition
     Dosage: 5 DAYS A WEEK
     Route: 065
     Dates: end: 202305
  32. WATER FOR INJECTION [Suspect]
     Active Substance: WATER
     Dosage: 6939.3 ML, SATURDAY AND WEDNESDAY EVERY WEEK, 12-HOUR DAILY INFUSION
     Route: 040
     Dates: start: 20230510, end: 20230511
  33. WATER FOR INJECTION [Suspect]
     Active Substance: WATER
     Dosage: 5 DAYS A WEEK
     Route: 065
     Dates: start: 202305
  34. PANTOPRAZOLE [Suspect]
     Active Substance: PANTOPRAZOLE
     Indication: Product used for unknown indication
     Dosage: 40 MG DILUTED IN 10 ML SODIUM CHLORIDE, TWICE DAILY
     Route: 040
     Dates: start: 202305, end: 202305
  35. FAT EMULSION NOS [Suspect]
     Active Substance: EGG PHOSPHOLIPIDS\SAFFLOWER OIL\SOYBEAN OIL
     Indication: Product used for unknown indication
     Dosage: 5 DAYS A WEEK
     Route: 065
  36. UNSPECIFIED INGREDIENT [Suspect]
     Active Substance: UNSPECIFIED INGREDIENT
     Route: 065
  37. PANTOPRAZOLE [Concomitant]
     Active Substance: PANTOPRAZOLE
     Dosage: 2 TIMES PER DAY
     Route: 040

REACTIONS (2)
  - Product quality issue [Unknown]
  - Tremor [Unknown]
